FAERS Safety Report 11328591 (Version 3)
Quarter: 2019Q4

REPORT INFORMATION
  Report Type: Spontaneous
  Country: US (occurrence: US)
  Receive Date: 20150731
  Receipt Date: 20191211
  Transmission Date: 20200122
  Serious: Yes (Other)
  Sender: FDA-Public Use
  Company Number: US-PFIZER INC-2015256677

PATIENT
  Age: 47 Year
  Sex: Female

DRUGS (2)
  1. GERITOL [ASCORBIC ACID;CALCIUM PANTOTHENATE;FERROUS SULFATE;NICOTINAMI [Concomitant]
  2. XELJANZ [Suspect]
     Active Substance: TOFACITINIB CITRATE
     Indication: RHEUMATOID ARTHRITIS
     Dosage: 5 MG, 2X/DAY
     Route: 048
     Dates: start: 201505

REACTIONS (4)
  - Alopecia [Unknown]
  - Product storage error [Unknown]
  - Condition aggravated [Unknown]
  - Rheumatoid arthritis [Unknown]
